FAERS Safety Report 24659085 (Version 2)
Quarter: 2025Q2

REPORT INFORMATION
  Report Type: Spontaneous
  Country: JP (occurrence: JP)
  Receive Date: 20241125
  Receipt Date: 20250612
  Transmission Date: 20250717
  Serious: Yes (Other)
  Sender: GILEAD
  Company Number: JP-GILEAD-2024-0694670

PATIENT
  Age: 59 Year
  Sex: Female

DRUGS (5)
  1. YESCARTA [Suspect]
     Active Substance: AXICABTAGENE CILOLEUCEL
     Indication: Diffuse large B-cell lymphoma
     Route: 065
  2. CISPLATIN [Concomitant]
     Active Substance: CISPLATIN
     Dates: end: 202406
  3. CYTARABINE [Concomitant]
     Active Substance: CYTARABINE
     Dates: end: 202406
  4. DEXAMETHASONE [Concomitant]
     Active Substance: DEXAMETHASONE
     Dates: end: 202406
  5. IRINOTECAN HYDROCHLORIDE [Concomitant]
     Active Substance: IRINOTECAN HYDROCHLORIDE
     Dates: start: 202406

REACTIONS (5)
  - Septic shock [Unknown]
  - Gastroenteritis staphylococcal [Unknown]
  - Cytomegalovirus viraemia [Unknown]
  - Pulmonary artery thrombosis [Unknown]
  - Deep vein thrombosis [Unknown]
